FAERS Safety Report 6680002-5 (Version None)
Quarter: 2010Q2

REPORT INFORMATION
  Report Type: 
  Country: None (occurrence: None)
  Receive Date: 20100413
  Receipt Date: 20100111
  Transmission Date: 20101027
  Serious: Yes (Hospitalization)
  Sender: FDA-Public Use
  Company Number: GB-TEVA-230541ISR

PATIENT
  Sex: Male

DRUGS (13)
  1. PREDNISOLONE [Suspect]
     Indication: PROSTATE CANCER
     Route: 048
     Dates: start: 20081022, end: 20081129
  2. PREDNISOLONE [Suspect]
     Route: 048
     Dates: start: 20081129
  3. ABIRATERONE ACETATE OR PLACEBO [Suspect]
     Indication: PROSTATE CANCER
     Route: 048
     Dates: start: 20081022, end: 20081129
  4. ABIRATERONE ACETATE OR PLACEBO [Suspect]
     Route: 048
     Dates: start: 20081219
  5. OXYBUTYNIN CHLORIDE [Concomitant]
     Indication: BLADDER PAIN
     Route: 048
     Dates: start: 20071220
  6. TRAMADOL HCL [Concomitant]
     Indication: CANCER PAIN
     Route: 048
     Dates: start: 20040101
  7. ATENOLOL [Concomitant]
     Indication: ANGINA PECTORIS
     Route: 048
     Dates: start: 19880101
  8. ATORVASTATIN CALCIUM [Concomitant]
     Indication: HYPERCHOLESTEROLAEMIA
     Route: 048
     Dates: start: 19930101
  9. AMLODIPINE [Concomitant]
     Indication: ANGINA PECTORIS
     Route: 048
     Dates: start: 19930101
  10. ACETYLSALICYLIC ACID [Concomitant]
     Indication: ANGINA PECTORIS
     Route: 048
     Dates: start: 20000101
  11. GASTROCOTE [Concomitant]
     Indication: ABDOMINAL PAIN UPPER
     Route: 048
     Dates: start: 19980101
  12. LANSOPRAZOLE [Concomitant]
     Indication: GASTRITIS PROPHYLAXIS
     Route: 048
     Dates: start: 20061201
  13. POLYETHYL GLYC. W/POTAS. CHLOR W/SOD. BICARB [Concomitant]
     Indication: PROPHYLAXIS
     Route: 048
     Dates: start: 20061201

REACTIONS (1)
  - URINARY TRACT INFECTION [None]
